FAERS Safety Report 12511151 (Version 1)
Quarter: 2016Q2

REPORT INFORMATION
  Report Type: Spontaneous
  Country: US (occurrence: US)
  Receive Date: 20160629
  Receipt Date: 20160629
  Transmission Date: 20160815
  Serious: No
  Sender: FDA-Public Use
  Company Number: US-BAYER-2016-128081

PATIENT
  Age: 10 Year
  Sex: Female

DRUGS (2)
  1. GADAVIST [Suspect]
     Active Substance: GADOBUTROL
     Indication: NUCLEAR MAGNETIC RESONANCE IMAGING
     Dosage: 4 ML, ONCE
     Route: 042
     Dates: start: 20160627, end: 20160627
  2. GADAVIST [Suspect]
     Active Substance: GADOBUTROL
     Indication: NEOPLASM SKIN

REACTIONS (1)
  - Nausea [None]

NARRATIVE: CASE EVENT DATE: 20160627
